FAERS Safety Report 6866567-9 (Version None)
Quarter: 2010Q3

REPORT INFORMATION
  Report Type: 
  Country: None (occurrence: None)
  Receive Date: 20100722
  Receipt Date: 20100712
  Transmission Date: 20110219
  Serious: Yes (Other)
  Sender: FDA-Public Use
  Company Number: FR-BAYER-201028328GPV

PATIENT
  Age: 45 Year
  Sex: Female
  Weight: 60 kg

DRUGS (4)
  1. MIRENA [Suspect]
     Indication: PRODUCT USED FOR UNKNOWN INDICATION
     Route: 015
     Dates: start: 20020901, end: 20091001
  2. MIRENA [Suspect]
     Route: 015
     Dates: start: 20091001
  3. VERAPAMIL [Concomitant]
     Dosage: UNIT DOSE: 240 MG
     Route: 048
     Dates: start: 20081201
  4. KENZEN [Concomitant]
     Dosage: UNIT DOSE: 8 MG
     Route: 048
     Dates: start: 20081201

REACTIONS (5)
  - ASCITES [None]
  - CHYLOTHORAX [None]
  - ENDOMETRIAL DISORDER [None]
  - LYMPHANGIOLEIOMYOMATOSIS [None]
  - PLEURAL EFFUSION [None]
